FAERS Safety Report 11124372 (Version 1)
Quarter: 2015Q2

REPORT INFORMATION
  Report Type: Spontaneous
  Country: US (occurrence: None)
  Receive Date: 20150518
  Receipt Date: 20150518
  Transmission Date: 20150821
  Serious: Yes (Hospitalization, Other)
  Sender: FDA-Public Use
  Company Number: 1224850-2015-00021

PATIENT
  Age: 51 Year
  Sex: Female

DRUGS (30)
  1. LANTUS [Concomitant]
     Active Substance: INSULIN GLARGINE
  2. POTASSIUM CHLORIDE. [Concomitant]
     Active Substance: POTASSIUM CHLORIDE
  3. CALCITRIOL. [Concomitant]
     Active Substance: CALCITRIOL
  4. AMLODIPINE [Concomitant]
     Active Substance: AMLODIPINE BESYLATE
  5. COREG [Concomitant]
     Active Substance: CARVEDILOL
  6. IRBESARTAN. [Concomitant]
     Active Substance: IRBESARTAN
  7. METOCLOPRAMIDE. [Concomitant]
     Active Substance: METOCLOPRAMIDE
  8. HEPARIN [Concomitant]
     Active Substance: HEPARIN SODIUM
  9. PANTOPRAZOLE [Concomitant]
     Active Substance: PANTOPRAZOLE SODIUM
  10. LEVOFLOXACIN. [Concomitant]
     Active Substance: LEVOFLOXACIN
  11. LEVOFLOXACIN. [Concomitant]
     Active Substance: LEVOFLOXACIN
  12. ZOSYN [Concomitant]
     Active Substance: PIPERACILLIN SODIUM\TAZOBACTAM SODIUM
  13. FUROSEMIDE. [Concomitant]
     Active Substance: FUROSEMIDE
  14. CARVEDILOL. [Concomitant]
     Active Substance: CARVEDILOL
  15. REGLA [Concomitant]
  16. GENTAMICIN. [Concomitant]
     Active Substance: GENTAMICIN
  17. DIPHENHYDRAMINE [Concomitant]
     Active Substance: DIPHENHYDRAMINE
  18. DEXTROSE. [Concomitant]
     Active Substance: DEXTROSE
  19. VANCOMYCIN [Concomitant]
     Active Substance: VANCOMYCIN
  20. CAAC GENERIC GEL CAPS (200 CT) 667 MG [Suspect]
     Active Substance: CALCIUM ACETATE
     Indication: HYPERPHOSPHATAEMIA
     Route: 048
  21. OMEPRAZOLE. [Concomitant]
     Active Substance: OMEPRAZOLE
  22. HYDROCHLOROTHIAZIDE. [Concomitant]
     Active Substance: HYDROCHLOROTHIAZIDE
  23. REGLAN [Concomitant]
     Active Substance: METOCLOPRAMIDE HYDROCHLORIDE
  24. IRBESARTAN. [Concomitant]
     Active Substance: IRBESARTAN
  25. HYDROMORPHONE [Concomitant]
     Active Substance: HYDROMORPHONE
  26. AVAPRO [Concomitant]
     Active Substance: IRBESARTAN
  27. HYDRALAZINE [Concomitant]
     Active Substance: HYDRALAZINE HYDROCHLORIDE
  28. INSULIN GLARGINE [Concomitant]
     Active Substance: INSULIN GLARGINE
  29. ACETAMINOPHEN. [Concomitant]
     Active Substance: ACETAMINOPHEN
  30. ONDANSETRON [Concomitant]
     Active Substance: ONDANSETRON

REACTIONS (3)
  - Opportunistic infection [None]
  - Citrobacter infection [None]
  - Peritonitis bacterial [None]

NARRATIVE: CASE EVENT DATE: 20150118
